FAERS Safety Report 12730471 (Version 2)
Quarter: 2016Q3

REPORT INFORMATION
  Report Type: Spontaneous
  Country: IT (occurrence: IT)
  Receive Date: 20160909
  Receipt Date: 20160928
  Transmission Date: 20161109
  Serious: Yes (Other)
  Sender: FDA-Public Use
  Company Number: IT-ASTRAZENECA-2016SE49532

PATIENT
  Sex: Female

DRUGS (2)
  1. LYNPARZA [Suspect]
     Active Substance: OLAPARIB
     Indication: OVARIAN CANCER
     Route: 048
     Dates: start: 20160502, end: 20160817
  2. LYNPARZA [Suspect]
     Active Substance: OLAPARIB
     Indication: OVARIAN CANCER
     Route: 048
     Dates: start: 20160408, end: 20160501

REACTIONS (7)
  - Leukopenia [Unknown]
  - Lymphopenia [Unknown]
  - Malignant neoplasm progression [Unknown]
  - Gamma-glutamyltransferase increased [Unknown]
  - Neutropenia [Unknown]
  - Transaminases increased [Unknown]
  - Asthenia [Unknown]

NARRATIVE: CASE EVENT DATE: 201604
